FAERS Safety Report 14999949 (Version 2)
Quarter: 2018Q2

REPORT INFORMATION
  Report Type: Spontaneous
  Country: FR (occurrence: FR)
  Receive Date: 20180612
  Receipt Date: 20180619
  Transmission Date: 20180711
  Serious: Yes (Other)
  Sender: FDA-Public Use
  Company Number: PHHY2018FR020419

PATIENT
  Age: 56 Year
  Sex: Male

DRUGS (15)
  1. MASITINIB [Suspect]
     Active Substance: MASITINIB
     Indication: PRODUCT USED FOR UNKNOWN INDICATION
     Dosage: 600 MG, QD (5.71 MG/KG/DAY)
     Route: 065
     Dates: start: 20161206, end: 20161208
  2. MASITINIB [Suspect]
     Active Substance: MASITINIB
     Dosage: 600 MG, QD (5.71 MG/KG/DAY)
     Route: 065
     Dates: start: 20170131, end: 20170512
  3. KETOROLAC [Concomitant]
     Active Substance: KETOROLAC\KETOROLAC TROMETHAMINE
     Indication: BONE PAIN
     Dosage: 2 DF, QD
     Route: 048
     Dates: start: 20161211
  4. PREDNISONE. [Suspect]
     Active Substance: PREDNISONE
     Indication: PRODUCT USED FOR UNKNOWN INDICATION
     Dosage: 10 MG, QD
     Route: 065
     Dates: start: 20161206, end: 20170515
  5. ONDANSETRON [Concomitant]
     Active Substance: ONDANSETRON
     Indication: PROPHYLAXIS
     Dosage: 24 MG, SINGLE (TOTAL)
     Route: 042
     Dates: start: 20161206, end: 20161206
  6. MASITINIB [Suspect]
     Active Substance: MASITINIB
     Dosage: 600 MG, QD (5.71 MG/KG/DAY)
     Route: 065
     Dates: end: 20170124
  7. MORPHINUM HCL [Concomitant]
     Indication: BONE PAIN
     Dosage: 10 MG, QD
     Route: 042
     Dates: start: 20161211
  8. MORPHINUM HCL [Concomitant]
     Indication: PAIN
     Dosage: 20 MG, QD
     Route: 042
     Dates: end: 20161211
  9. DEXAMETHASONE. [Concomitant]
     Active Substance: DEXAMETHASONE
     Dosage: 20 MG, SINGLE (TOTAL)
     Route: 042
     Dates: start: 20161227, end: 20161227
  10. DOCETAXEL. [Suspect]
     Active Substance: DOCETAXEL
     Indication: PRODUCT USED FOR UNKNOWN INDICATION
     Dosage: 72 MG/M2, UNK
     Route: 041
     Dates: start: 20161206, end: 20170503
  11. KETOROLAC [Concomitant]
     Active Substance: KETOROLAC\KETOROLAC TROMETHAMINE
     Indication: PAIN
  12. ONDANSETRON [Concomitant]
     Active Substance: ONDANSETRON
     Dosage: 24 MG, SINGLE (TOTAL)
     Route: 042
     Dates: start: 20161227, end: 20161227
  13. DEXAMETHASONE. [Concomitant]
     Active Substance: DEXAMETHASONE
     Indication: PROPHYLAXIS
     Dosage: 20 MG, SINGLE (TOTAL)
     Route: 042
     Dates: start: 20161206, end: 20161206
  14. DEXAMETHASONE. [Concomitant]
     Active Substance: DEXAMETHASONE
     Dosage: 20 MG, SINGLE (TOTAL)
     Route: 042
     Dates: start: 20170116, end: 20170116
  15. ONDANSETRON [Concomitant]
     Active Substance: ONDANSETRON
     Dosage: 24 MG, SINGLE (TOTAL)
     Route: 042
     Dates: start: 20170116, end: 20170116

REACTIONS (2)
  - Second primary malignancy [Unknown]
  - Acute lymphocytic leukaemia [Unknown]

NARRATIVE: CASE EVENT DATE: 20170516
